FAERS Safety Report 4965843-4 (Version None)
Quarter: 2006Q2

REPORT INFORMATION
  Report Type: 
  Country: None (occurrence: None)
  Receive Date: 20060407
  Receipt Date: 20060403
  Transmission Date: 20061013
  Serious: Yes (Life-Threatening, Hospitalization)
  Sender: FDA-Public Use
  Company Number: US-JNJFOC-20060400924

PATIENT
  Sex: Male

DRUGS (14)
  1. DOXIL [Suspect]
     Indication: MULTIPLE MYELOMA
     Route: 042
  2. VELCADE [Suspect]
     Indication: MULTIPLE MYELOMA
     Route: 042
  3. DECADRON SRC [Suspect]
     Indication: MULTIPLE MYELOMA
     Route: 048
  4. ZOFRAN [Concomitant]
  5. OXYCODONE [Concomitant]
  6. ACYCLOVIR [Concomitant]
  7. PROTONIX [Concomitant]
  8. ALLOPURINOL [Concomitant]
  9. SYNTHROID [Concomitant]
  10. VITAMIN B6 [Concomitant]
  11. PENTAMIDINE [Concomitant]
  12. ASPIRIN [Concomitant]
  13. DIMYCOR [Concomitant]
  14. ALBUTEROL [Concomitant]
     Route: 055

REACTIONS (2)
  - DEEP VEIN THROMBOSIS [None]
  - PULMONARY EMBOLISM [None]
